FAERS Safety Report 23370752 (Version 2)
Quarter: 2024Q2

REPORT INFORMATION
  Report Type: Spontaneous
  Country: US (occurrence: US)
  Receive Date: 20240105
  Receipt Date: 20240522
  Transmission Date: 20240715
  Serious: No
  Sender: FDA-Public Use
  Company Number: US-SA-SAC20240102000703

PATIENT
  Age: 60 Year
  Sex: Female
  Weight: 110 kg

DRUGS (9)
  1. DUPIXENT [Suspect]
     Active Substance: DUPILUMAB
     Indication: Nasal polyps
     Dosage: 300MG, QOW
     Route: 058
     Dates: start: 20200326
  2. DUPIXENT [Suspect]
     Active Substance: DUPILUMAB
     Indication: Nasal polyps
  3. FLUTICASONE PROPIONATE [Concomitant]
     Active Substance: FLUTICASONE PROPIONATE
  4. ALBUTEROL SULFATE [Concomitant]
     Active Substance: ALBUTEROL SULFATE
  5. MONTELUKAST SODIUM [Concomitant]
     Active Substance: MONTELUKAST SODIUM
  6. AMLODIPINE BESYLATE;BENAZEPRIL [Concomitant]
  7. BREO ELLIPTA [Concomitant]
     Active Substance: FLUTICASONE FUROATE\VILANTEROL TRIFENATATE
  8. LEVETIRACETAM [Concomitant]
     Active Substance: LEVETIRACETAM
  9. BUDESONIDE [Concomitant]
     Active Substance: BUDESONIDE
     Dosage: 2ML 30^S/0.5/2ML

REACTIONS (1)
  - Cough [Unknown]
